FAERS Safety Report 7287848-3 (Version None)
Quarter: 2011Q1

REPORT INFORMATION
  Report Type: 
  Country: None (occurrence: None)
  Receive Date: 20110211
  Receipt Date: 20110210
  Transmission Date: 20110831
  Serious: No
  Sender: FDA-Public Use
  Company Number: US-PFIZER INC-US-WYE-H16926310

PATIENT
  Sex: Female
  Weight: 68 kg

DRUGS (2)
  1. PRISTIQ [Suspect]
     Indication: DEPRESSION
     Dosage: 50 MG, 1X/DAY
     Route: 048
     Dates: start: 20100812
  2. ZOLOFT [Suspect]
     Indication: DEPRESSION
     Dosage: 150 MG, 1X/DAY
     Route: 048

REACTIONS (7)
  - DECREASED ACTIVITY [None]
  - RESPIRATORY RATE DECREASED [None]
  - HYPERSOMNIA [None]
  - INSOMNIA [None]
  - UNEVALUABLE EVENT [None]
  - SEDATION [None]
  - ASTHENIA [None]
